FAERS Safety Report 6231394-2 (Version None)
Quarter: 2009Q2

REPORT INFORMATION
  Report Type: 
  Country: None (occurrence: None)
  Receive Date: 20090611
  Receipt Date: 20090602
  Transmission Date: 20091009
  Serious: Yes (Hospitalization)
  Sender: FDA-Public Use
  Company Number: GXKR2009SE06652

PATIENT
  Age: 57 Year
  Sex: Male

DRUGS (15)
  1. SIMVASTATIN         (SIMVASTATIN) [Suspect]
     Dosage: 20 MG/DAY, ORAL
     Route: 048
     Dates: start: 20010101
  2. DESLORATADINE [Concomitant]
  3. OMEPRAZOLE [Concomitant]
  4. GASTRO-RESISTANT CAPSULES [Concomitant]
  5. FOLACIN (CALCIUM PHOSPHATE, FOLIC ACID) [Concomitant]
  6. ACETAMINOPHEN [Concomitant]
  7. PANOCOD (CODEINE PHOSPHATE, PARACETAMOL) [Concomitant]
  8. NORMORIX MITE (AMILORIDE HYDROCHLORIDE, HYDROCHLOROTHIAZIDE) [Concomitant]
  9. DEXOFEN (DEXTROPROPOXYPHENE NAPSILATE) (DEXTROPROPOXYPHENE NAPSILATE) [Concomitant]
  10. INOLAXOL (STERCULIA, STERCULIA URENS) [Concomitant]
  11. RAMIPRIL [Concomitant]
  12. STILNOCT (ZOLPIDEM TARTRATE) [Concomitant]
  13. DICLOFENAC (DICLOFENAC) [Concomitant]
  14. CITALOPRAM HYDROBROMIDE [Concomitant]
  15. LAXOBERAL       ^BOEHRINGER INGELHEIM^ (SODIUM PICOSULFATE) [Concomitant]

REACTIONS (6)
  - FIBROSIS [None]
  - INFLAMMATION [None]
  - LUNG INFILTRATION [None]
  - LYMPHADENOPATHY [None]
  - NECROSIS [None]
  - PYREXIA [None]
